FAERS Safety Report 7362304-2 (Version None)
Quarter: 2011Q1

REPORT INFORMATION
  Report Type: 
  Country: None (occurrence: None)
  Receive Date: 20110318
  Receipt Date: 20110315
  Transmission Date: 20110831
  Serious: Yes (Death, Life-Threatening, Hospitalization, Other)
  Sender: FDA-Public Use
  Company Number: PHHO2011TW03299

PATIENT
  Sex: Male
  Weight: 55.4 kg

DRUGS (18)
  1. GLIMEPIRIDE [Concomitant]
     Indication: DIABETES MELLITUS
  2. ENTECAVIR [Concomitant]
     Indication: HEPATITIS B
  3. ROSUVASTATIN [Concomitant]
     Indication: HYPERCHOLESTEROLAEMIA
  4. BUDESONIDE [Concomitant]
     Indication: COUGH
  5. EVEROLIMUS [Suspect]
     Indication: HEPATIC NEOPLASM MALIGNANT
     Dosage: 7.5 MG, QD
     Route: 048
     Dates: start: 20101111, end: 20110214
  6. BROWN MIXTURE [Concomitant]
     Indication: COUGH
     Dosage: UNK
     Dates: start: 20110201
  7. ALBUMIN (HUMAN) [Concomitant]
     Indication: HYPOALBUMINAEMIA
  8. HUMULIN N [Concomitant]
     Indication: DIABETES MELLITUS
  9. TRANEXAMIC ACID [Concomitant]
     Indication: HAEMATURIA
  10. LORAZEPAM [Concomitant]
     Indication: INSOMNIA
  11. METHYLPREDNISOLONE [Suspect]
  12. PROHEPARUM [Concomitant]
     Indication: HEPATIC CIRRHOSIS
  13. SIMETHICONE [Concomitant]
     Indication: ABDOMINAL DISTENSION
  14. AMINO ACIDS [Concomitant]
     Indication: DECREASED APPETITE
  15. METFORMIN HCL [Concomitant]
     Indication: DIABETES MELLITUS
  16. URSODIOL [Concomitant]
     Indication: CHOLELITHIASIS
  17. HUMULIN R [Concomitant]
     Indication: DIABETES MELLITUS
  18. PANTOPRAZOLE [Concomitant]

REACTIONS (12)
  - COUGH [None]
  - RENAL IMPAIRMENT [None]
  - DYSPNOEA EXERTIONAL [None]
  - BRONCHIOLITIS [None]
  - RESPIRATORY DISTRESS [None]
  - INTERSTITIAL LUNG DISEASE [None]
  - MALAISE [None]
  - ABDOMINAL PAIN [None]
  - INFECTION [None]
  - LUNG INFILTRATION [None]
  - HEPATITIS B [None]
  - HEPATIC FUNCTION ABNORMAL [None]
